FAERS Safety Report 11734580 (Version 2)
Quarter: 2015Q4

REPORT INFORMATION
  Report Type: Spontaneous
  Country: FR (occurrence: FR)
  Receive Date: 20151113
  Receipt Date: 20151117
  Transmission Date: 20160304
  Serious: Yes (Other)
  Sender: FDA-Public Use
  Company Number: FR-JNJFOC-20151105260

PATIENT

DRUGS (6)
  1. 5-ASA [Concomitant]
     Active Substance: MESALAMINE
     Route: 065
  2. METHOTREXATE [Concomitant]
     Active Substance: METHOTREXATE
     Route: 065
  3. CICLOSPORIN [Concomitant]
     Active Substance: CYCLOSPORINE
     Route: 065
  4. INFLIXIMAB, RECOMBINANT [Suspect]
     Active Substance: INFLIXIMAB
     Indication: COLITIS ULCERATIVE
     Route: 042
  5. INFLIXIMAB, RECOMBINANT [Suspect]
     Active Substance: INFLIXIMAB
     Indication: CROHN^S DISEASE
     Route: 042
  6. BUDESONIDE. [Concomitant]
     Active Substance: BUDESONIDE
     Route: 065

REACTIONS (34)
  - Infusion related reaction [Unknown]
  - Lyme disease [Unknown]
  - Pustular psoriasis [Unknown]
  - Erysipelas [Unknown]
  - Subcutaneous abscess [Unknown]
  - Furuncle [Unknown]
  - Folliculitis [Unknown]
  - Actinic keratosis [Unknown]
  - Skin papilloma [Unknown]
  - Candida infection [Unknown]
  - Basal cell carcinoma [Unknown]
  - Squamous cell carcinoma [Unknown]
  - Systemic lupus erythematosus [Unknown]
  - Syphilis [Unknown]
  - Herpes simplex [Unknown]
  - Psoriasis [Recovered/Resolved]
  - Guttate psoriasis [Recovered/Resolved]
  - Malassezia infection [Unknown]
  - Acarodermatitis [Unknown]
  - Erythema multiforme [Unknown]
  - Impetigo [Unknown]
  - Alopecia [Unknown]
  - Herpes zoster [Unknown]
  - Molluscum contagiosum [Unknown]
  - Tinea versicolour [Unknown]
  - Eczema [Unknown]
  - Paronychia [Unknown]
  - Dermatophytosis [Unknown]
  - Stevens-Johnson syndrome [Unknown]
  - Dermo-hypodermitis [Unknown]
  - Adverse drug reaction [Unknown]
  - Seborrhoeic dermatitis [Unknown]
  - Malignant melanoma [Unknown]
  - Staphylococcal infection [Unknown]
